FAERS Safety Report 22365425 (Version 3)
Quarter: 2025Q2

REPORT INFORMATION
  Report Type: Spontaneous
  Country: US (occurrence: US)
  Receive Date: 20230525
  Receipt Date: 20250515
  Transmission Date: 20250717
  Serious: No
  Sender: UCB
  Company Number: US-UCBSA-2023011129

PATIENT
  Sex: Female
  Weight: 62.59 kg

DRUGS (2)
  1. CIMZIA [Suspect]
     Active Substance: CERTOLIZUMAB PEGOL
     Indication: Rheumatoid arthritis
     Dosage: 200 MILLIGRAM, EV 2 WEEKS(QOW)
     Route: 058
     Dates: start: 202302
  2. CIMZIA [Suspect]
     Active Substance: CERTOLIZUMAB PEGOL
     Dosage: 200 MILLIGRAM, EV 2 WEEKS(QOW)
     Route: 058
     Dates: start: 202311

REACTIONS (7)
  - Pharyngitis streptococcal [Unknown]
  - Illness [Unknown]
  - COVID-19 [Unknown]
  - Product availability issue [Unknown]
  - Therapy interrupted [Unknown]
  - Intentional dose omission [Unknown]
  - Off label use [Unknown]

NARRATIVE: CASE EVENT DATE: 20230101
